FAERS Safety Report 18580540 (Version 2)
Quarter: 2021Q3

REPORT INFORMATION
  Report Type: Spontaneous
  Country: US (occurrence: US)
  Receive Date: 20201204
  Receipt Date: 20210914
  Transmission Date: 20211014
  Serious: No
  Sender: FDA-Public Use
  Company Number: US-PFIZER INC-2020475547

PATIENT
  Age: 65 Year
  Sex: Female
  Weight: 78.01 kg

DRUGS (3)
  1. LEVOTHYROXINE SODIUM. [Concomitant]
     Active Substance: LEVOTHYROXINE SODIUM
     Dosage: 100 UG
  2. INLYTA [Suspect]
     Active Substance: AXITINIB
     Indication: METASTATIC RENAL CELL CARCINOMA
     Dosage: 5 MG, 2X/DAY
     Route: 048
     Dates: start: 20201020
  3. INLYTA [Suspect]
     Active Substance: AXITINIB
     Indication: RHEUMATOID ARTHRITIS
     Dosage: 5 MG, 2X/DAY
     Route: 048
     Dates: start: 20201020

REACTIONS (4)
  - Diarrhoea [Not Recovered/Not Resolved]
  - Blood potassium increased [Unknown]
  - Weight decreased [Unknown]
  - Eating disorder [Unknown]

NARRATIVE: CASE EVENT DATE: 2020
